FAERS Safety Report 7743883-X (Version None)
Quarter: 2011Q3

REPORT INFORMATION
  Report Type: 
  Country: None (occurrence: None)
  Receive Date: 20110912
  Receipt Date: 20110901
  Transmission Date: 20111222
  Serious: Yes (Hospitalization)
  Sender: FDA-Public Use
  Company Number: US-GLAXOSMITHKLINE-A0943200A

PATIENT
  Age: 50 Year
  Sex: Female

DRUGS (2)
  1. BLOOD PRESSURE MEDICATION [Concomitant]
  2. AVANDIA [Suspect]
     Indication: TYPE 2 DIABETES MELLITUS
     Route: 048
     Dates: start: 20050101, end: 20080101

REACTIONS (6)
  - DIZZINESS [None]
  - PAIN IN EXTREMITY [None]
  - HYPOAESTHESIA [None]
  - CEREBROVASCULAR ACCIDENT [None]
  - VOMITING [None]
  - POLLAKIURIA [None]
